FAERS Safety Report 21061016 (Version 2)
Quarter: 2022Q3

REPORT INFORMATION
  Report Type: Spontaneous
  Country: US (occurrence: US)
  Receive Date: 20220709
  Receipt Date: 20220817
  Transmission Date: 20221027
  Serious: No
  Sender: FDA-Public Use
  Company Number: US-SA-SAC20220704001599

PATIENT
  Age: 71 Year
  Sex: Female
  Weight: 79.8 kg

DRUGS (6)
  1. DUPIXENT [Suspect]
     Active Substance: DUPILUMAB
     Indication: Dermatitis atopic
     Dosage: 600 MG, 1X
     Route: 058
     Dates: start: 20210310
  2. DUPIXENT [Suspect]
     Active Substance: DUPILUMAB
     Indication: Neurodermatitis
     Dosage: 300 MG, QOW
     Route: 058
     Dates: start: 20210421
  3. DUPIXENT [Suspect]
     Active Substance: DUPILUMAB
     Indication: Eczema
  4. CLOBETASOL [Concomitant]
     Active Substance: CLOBETASOL
     Indication: Eczema
     Dosage: DOSAGE/FREQUENCY: BID 3 DAYS WEEK
     Route: 061
     Dates: start: 20211102
  5. TRIPLE X [BETAMETHASONE DIPROPIONATE;CLOTRIMAZOLE;NEOMYCIN SULFATE] [Concomitant]
     Indication: Eczema
     Dosage: DOSAGE/FREQUENCY: 10 DAYS (10-14 DAYS)
     Route: 061
     Dates: start: 20210810
  6. BETAMETHASONE [Concomitant]
     Active Substance: BETAMETHASONE
     Indication: Eczema
     Dosage: DOSAGE/FREQUENCY: BID Q 2 WEEKS
     Route: 061
     Dates: start: 20210310, end: 20211102

REACTIONS (3)
  - Back disorder [Not Recovered/Not Resolved]
  - Pruritus [Unknown]
  - Inappropriate schedule of product administration [Unknown]

NARRATIVE: CASE EVENT DATE: 20210810
